FAERS Safety Report 10080966 (Version 3)
Quarter: 2014Q2

REPORT INFORMATION
  Report Type: Spontaneous
  Country: US (occurrence: US)
  Receive Date: 20140416
  Receipt Date: 20140626
  Transmission Date: 20141212
  Serious: No
  Sender: FDA-Public Use
  Company Number: US-PFIZER INC-2014101209

PATIENT
  Age: 64 Year
  Sex: Male
  Weight: 68.03 kg

DRUGS (6)
  1. LYRICA [Suspect]
     Indication: DIABETIC NEUROPATHY
     Dosage: 75 MG, DAILY
     Dates: start: 201405, end: 2014
  2. LYRICA [Suspect]
     Dosage: 150 MG, DAILY
     Dates: start: 2014
  3. NEURONTIN [Suspect]
     Dosage: UNK
  4. VIAGRA [Suspect]
     Dosage: UNK
  5. CREON [Concomitant]
     Dosage: 300 MG, 3X/DAY
  6. HUMULIN 70/30 [Concomitant]
     Dosage: 20 IU, 2X/DAY

REACTIONS (2)
  - Intentional product misuse [Unknown]
  - Drug ineffective [Unknown]
